FAERS Safety Report 6024431-1 (Version None)
Quarter: 2008Q4

REPORT INFORMATION
  Report Type: 
  Country: None (occurrence: None)
  Receive Date: 20081231
  Receipt Date: 20081219
  Transmission Date: 20090506
  Serious: Yes (Other)
  Sender: FDA-Public Use
  Company Number: PHHY2008JP32789

PATIENT
  Age: 54 Year
  Sex: Female

DRUGS (2)
  1. GLEEVEC [Suspect]
     Indication: CHRONIC MYELOID LEUKAEMIA
     Dosage: 400 MG/DAY
     Route: 048
     Dates: start: 20080201, end: 20081006
  2. PREDONINE [Concomitant]
     Indication: RASH
     Dosage: 10 MG, UNK

REACTIONS (6)
  - BRONCHITIS CHRONIC [None]
  - DYSPNOEA [None]
  - LYMPHOCYTE STIMULATION TEST POSITIVE [None]
  - NO THERAPEUTIC RESPONSE [None]
  - PARONYCHIA [None]
  - RASH [None]
